FAERS Safety Report 23074812 (Version 2)
Quarter: 2023Q4

REPORT INFORMATION
  Report Type: Spontaneous
  Country: FR (occurrence: FR)
  Receive Date: 20231017
  Receipt Date: 20231109
  Transmission Date: 20240110
  Serious: Yes (Hospitalization, Other)
  Sender: FDA-Public Use
  Company Number: None

PATIENT
  Age: 83 Year
  Sex: Male
  Weight: 69.3 kg

DRUGS (1)
  1. DUPIXENT [Suspect]
     Active Substance: DUPILUMAB
     Indication: Prurigo
     Dosage: 1 DF, Q15D
     Route: 058
     Dates: start: 20230502, end: 202308

REACTIONS (5)
  - Staphylococcal bacteraemia [Recovering/Resolving]
  - Device related infection [Recovering/Resolving]
  - Staphylococcal infection [Recovering/Resolving]
  - Intervertebral discitis [Recovered/Resolved]
  - Product use in unapproved indication [Unknown]

NARRATIVE: CASE EVENT DATE: 20230502
